FAERS Safety Report 13563086 (Version 1)
Quarter: 2017Q2

REPORT INFORMATION
  Report Type: Spontaneous
  Country: US (occurrence: US)
  Receive Date: 20170518
  Receipt Date: 20170518
  Transmission Date: 20170830
  Serious: No
  Sender: FDA-Public Use
  Company Number: None

PATIENT
  Age: 64 Year
  Sex: Male
  Weight: 102.47 kg

DRUGS (1)
  1. CARBOPLATIN. [Suspect]
     Active Substance: CARBOPLATIN
     Indication: NON-SMALL CELL LUNG CANCER
     Dates: start: 20160502, end: 20170510

REACTIONS (6)
  - Dyspnoea [None]
  - Heart rate increased [None]
  - Anaphylactic reaction [None]
  - Blood pressure increased [None]
  - Wheezing [None]
  - Respiratory distress [None]

NARRATIVE: CASE EVENT DATE: 20170510
